FAERS Safety Report 11788442 (Version 2)
Quarter: 2015Q4

REPORT INFORMATION
  Report Type: Spontaneous
  Country: US (occurrence: US)
  Receive Date: 20151201
  Receipt Date: 20151202
  Transmission Date: 20160305
  Serious: No
  Sender: FDA-Public Use
  Company Number: US-BRISTOL-MYERS SQUIBB COMPANY-BMS-2015-082935

PATIENT
  Age: 40 Year
  Sex: Female
  Weight: 114.29 kg

DRUGS (1)
  1. GLUCOPHAGE XR [Suspect]
     Active Substance: METFORMIN HYDROCHLORIDE
     Indication: TYPE 2 DIABETES MELLITUS
     Dosage: 2000 MG, QD
     Route: 065

REACTIONS (1)
  - Rash [Unknown]

NARRATIVE: CASE EVENT DATE: 20151120
